FAERS Safety Report 6837219-6 (Version None)
Quarter: 2010Q3

REPORT INFORMATION
  Report Type: 
  Country: None (occurrence: None)
  Receive Date: 20100713
  Receipt Date: 20100702
  Transmission Date: 20110219
  Serious: Yes (Hospitalization)
  Sender: FDA-Public Use
  Company Number: FR-AMGEN-QUU422859

PATIENT
  Sex: Female

DRUGS (6)
  1. ENBREL [Suspect]
     Indication: RHEUMATOID ARTHRITIS
     Dosage: UNKNOWN
     Route: 058
     Dates: start: 20090701, end: 20100301
  2. LEVOTHYROXINE SODIUM [Concomitant]
     Dosage: 125 UG STRENGTH; DOSE UNKNOWN
     Route: 048
  3. SPECIAFOLDINE [Concomitant]
     Dosage: UNKNOWN
     Route: 048
  4. LANZOR [Concomitant]
     Dosage: 15 MG STRENGTH; DOSE UNKNOWN
     Route: 048
  5. SOLUPRED [Concomitant]
     Dosage: UNKNOWN
     Route: 048
  6. METHOTREXATE [Concomitant]
     Dosage: UNKNOWN

REACTIONS (1)
  - SARCOIDOSIS [None]
